FAERS Safety Report 8200602-0 (Version None)
Quarter: 2012Q1

REPORT INFORMATION
  Report Type: 
  Country: None (occurrence: None)
  Receive Date: 20120312
  Receipt Date: 20120306
  Transmission Date: 20120608
  Serious: No
  Sender: FDA-Public Use
  Company Number: US-PFIZER INC-2012061311

PATIENT
  Sex: Female

DRUGS (13)
  1. PROTONIX [Suspect]
     Dosage: UNK
  2. ZITHROMAX [Suspect]
     Dosage: UNK
  3. ZYRTEC [Suspect]
     Dosage: UNK
  4. ANTIVERT [Suspect]
     Dosage: UNK
  5. PRISTIQ [Suspect]
     Dosage: UNK
  6. MEDROL [Suspect]
     Dosage: UNK
  7. EFFEXOR XR [Suspect]
     Dosage: UNK
  8. VISTARIL [Suspect]
     Dosage: UNK
  9. NEURONTIN [Suspect]
     Dosage: UNK
  10. RELPAX [Suspect]
     Dosage: UNK
  11. ARMODAFINIL [Suspect]
     Dosage: UNK
  12. VIBRAMYCIN [Suspect]
     Dosage: UNK
  13. ZOLOFT [Suspect]
     Dosage: UNK

REACTIONS (3)
  - DEPRESSION [None]
  - BLOOD PRESSURE FLUCTUATION [None]
  - BLOOD CHOLESTEROL ABNORMAL [None]
